FAERS Safety Report 9379802 (Version 1)
Quarter: 2013Q3

REPORT INFORMATION
  Report Type: Spontaneous
  Country: US (occurrence: None)
  Receive Date: 20130701
  Receipt Date: 20130701
  Transmission Date: 20140515
  Serious: Yes (Congenital Anomaly, Other)
  Sender: FDA-Public Use
  Company Number: None

PATIENT
  Age: 23 Year
  Sex: Female

DRUGS (1)
  1. SOLODYN [Suspect]
     Indication: ILL-DEFINED DISORDER
     Route: 048
     Dates: start: 20130504, end: 20130627

REACTIONS (1)
  - Local swelling [None]
